FAERS Safety Report 21360867 (Version 2)
Quarter: 2022Q4

REPORT INFORMATION
  Report Type: Spontaneous
  Country: US (occurrence: US)
  Receive Date: 20220921
  Receipt Date: 20221010
  Transmission Date: 20230113
  Serious: No
  Sender: FDA-Public Use
  Company Number: US-IDORSIA-001235-2022-US

PATIENT
  Sex: Female

DRUGS (4)
  1. QUVIVIQ [Suspect]
     Active Substance: DARIDOREXANT
     Indication: Insomnia
     Dosage: 25 MG, QD
     Route: 048
     Dates: start: 202208, end: 202209
  2. QUVIVIQ [Suspect]
     Active Substance: DARIDOREXANT
     Dosage: 25 MG, QD
     Route: 048
     Dates: start: 20220921
  3. LYRICA [Concomitant]
     Active Substance: PREGABALIN
  4. ATENOLOL [Concomitant]
     Active Substance: ATENOLOL

REACTIONS (4)
  - Drug withdrawal syndrome [Unknown]
  - Hyperhidrosis [Unknown]
  - Insomnia [Unknown]
  - Headache [Unknown]
